FAERS Safety Report 8087637-6 (Version None)
Quarter: 2012Q1

REPORT INFORMATION
  Report Type: 
  Country: None (occurrence: None)
  Receive Date: 20120128
  Receipt Date: 20110526
  Transmission Date: 20120608
  Serious: No
  Sender: FDA-Public Use
  Company Number: US-ABBOTT-11P-163-0728687-00

PATIENT
  Age: 49 Year
  Sex: Female

DRUGS (8)
  1. ATENOLOL [Concomitant]
     Indication: MIGRAINE
  2. SPRINTEC [Concomitant]
     Indication: CONTRACEPTION
  3. PREDNISONE TAB [Concomitant]
     Indication: PRODUCT USED FOR UNKNOWN INDICATION
     Dosage: 5MG IN AM AND 4MG IN AFTERNOON
  4. NORETHINDRONE [Concomitant]
     Indication: ENDOMETRIOSIS
  5. HUMIRA [Suspect]
     Indication: RHEUMATOID ARTHRITIS
     Dates: start: 20110304
  6. GABAPENTIN [Concomitant]
     Indication: PRODUCT USED FOR UNKNOWN INDICATION
     Dosage: 1-2 EVERY DAY
  7. FLUOXETINE [Concomitant]
     Indication: PRODUCT USED FOR UNKNOWN INDICATION
     Dosage: IN AM
  8. LEVOTHYROXINE SODIUM [Concomitant]
     Indication: PRODUCT USED FOR UNKNOWN INDICATION

REACTIONS (5)
  - INJECTION SITE URTICARIA [None]
  - INJECTION SITE PAIN [None]
  - INJECTION SITE OEDEMA [None]
  - URTICARIA [None]
  - INJECTION SITE WARMTH [None]
